FAERS Safety Report 7415920-3 (Version None)
Quarter: 2011Q2

REPORT INFORMATION
  Report Type: 
  Country: None (occurrence: None)
  Receive Date: 20110414
  Receipt Date: 20110331
  Transmission Date: 20111010
  Serious: Yes (Hospitalization)
  Sender: FDA-Public Use
  Company Number: US-JNJFOC-20110400893

PATIENT
  Sex: Male
  Weight: 40.2 kg

DRUGS (2)
  1. REMICADE [Suspect]
     Indication: INFLAMMATORY BOWEL DISEASE
     Route: 042
  2. CIMZIA [Concomitant]

REACTIONS (4)
  - DIARRHOEA HAEMORRHAGIC [None]
  - WEIGHT DECREASED [None]
  - ABDOMINAL PAIN [None]
  - MYCOTIC ALLERGY [None]
